FAERS Safety Report 4522506-7 (Version None)
Quarter: 2004Q4

REPORT INFORMATION
  Report Type: 
  Country: None (occurrence: None)
  Receive Date: 20041207
  Receipt Date: 20041123
  Transmission Date: 20050328
  Serious: Yes (Hospitalization, Other)
  Sender: FDA-Public Use
  Company Number: USA041184543

PATIENT
  Age: 51 Year
  Sex: Female

DRUGS (2)
  1. STRATTERA [Suspect]
     Indication: ATTENTION DEFICIT/HYPERACTIVITY DISORDER
     Dosage: 80 MG DAY
     Dates: start: 20040726
  2. SYNTHROID [Concomitant]

REACTIONS (4)
  - COMA [None]
  - ENCEPHALITIS VIRAL [None]
  - GRAND MAL CONVULSION [None]
  - MYALGIA [None]
